FAERS Safety Report 10059730 (Version 1)
Quarter: 2014Q2

REPORT INFORMATION
  Report Type: Spontaneous
  Country: MX (occurrence: MX)
  Receive Date: 20140404
  Receipt Date: 20140404
  Transmission Date: 20141212
  Serious: Yes (Other)
  Sender: FDA-Public Use
  Company Number: MX-BAYER-2014-051106

PATIENT
  Age: 52 Year
  Sex: Female

DRUGS (1)
  1. BETAFERON [Suspect]
     Indication: MULTIPLE SCLEROSIS
     Dosage: 8 MIU, QOD
     Route: 058

REACTIONS (1)
  - Multiple sclerosis relapse [Unknown]
